FAERS Safety Report 7108079-3 (Version None)
Quarter: 2010Q4

REPORT INFORMATION
  Report Type: 
  Country: None (occurrence: None)
  Receive Date: 20101115
  Receipt Date: 20101115
  Transmission Date: 20110411
  Serious: Yes (Congenital Anomaly, Other)
  Sender: FDA-Public Use
  Company Number: None

PATIENT
  Sex: Male
  Weight: 34.0198 kg

DRUGS (1)
  1. SINGULAIR [Suspect]
     Dosage: 10 MG DAILY ORAL USED ABOUT ~4-5 YRS
     Route: 048
     Dates: end: 20101007

REACTIONS (5)
  - AGITATION [None]
  - ANXIETY [None]
  - DEPRESSION [None]
  - MUSCLE TWITCHING [None]
  - RESTLESSNESS [None]
